FAERS Safety Report 7056942-4 (Version None)
Quarter: 2010Q4

REPORT INFORMATION
  Report Type: 
  Country: None (occurrence: None)
  Receive Date: 20101022
  Receipt Date: 20101015
  Transmission Date: 20110411
  Serious: Yes (Death, Hospitalization, Other)
  Sender: FDA-Public Use
  Company Number: US-CELGENEUS-163-20785-10100032

PATIENT
  Sex: Female

DRUGS (2)
  1. THALOMID [Suspect]
     Indication: MYELOFIBROSIS
     Route: 048
     Dates: start: 20080401
  2. THALOMID [Suspect]
     Route: 048
     Dates: start: 20100301, end: 20100601

REACTIONS (4)
  - ANAEMIA [None]
  - FALL [None]
  - SEPSIS [None]
  - SKIN INFECTION [None]
